FAERS Safety Report 18421884 (Version 1)
Quarter: 2020Q4

REPORT INFORMATION
  Report Type: Spontaneous
  Country: JP (occurrence: JP)
  Receive Date: 20201023
  Receipt Date: 20201023
  Transmission Date: 20210114
  Serious: Yes (Other)
  Sender: FDA-Public Use
  Company Number: JP-BAYER-2020-228228

PATIENT
  Sex: Female

DRUGS (1)
  1. MIRENA [Suspect]
     Active Substance: LEVONORGESTREL
     Dosage: 20?G PER DAILY, CONTINUOUSLY
     Route: 015
     Dates: start: 2018

REACTIONS (1)
  - Breast cancer female [None]

NARRATIVE: CASE EVENT DATE: 2020
